FAERS Safety Report 5858837-8 (Version None)
Quarter: 2008Q3

REPORT INFORMATION
  Report Type: 
  Country: None (occurrence: None)
  Receive Date: 20080818
  Receipt Date: 20080609
  Transmission Date: 20090109
  Serious: No
  Sender: FDA-Public Use
  Company Number: WAES 0711USA00906

PATIENT
  Age: 64 Year
  Sex: Male

DRUGS (8)
  1. JANUVIA [Suspect]
     Indication: TYPE 2 DIABETES MELLITUS
     Dosage: 100 MG/DAILY/PO
     Route: 048
     Dates: start: 20070916
  2. ACTOS [Concomitant]
  3. COUMADIN [Concomitant]
  4. LANTUS [Concomitant]
  5. ZOCOR [Concomitant]
  6. ASPIRIN [Concomitant]
  7. LISINOPRIL [Concomitant]
  8. METOPROLOL TARTRATE [Concomitant]

REACTIONS (2)
  - BLOOD GLUCOSE DECREASED [None]
  - CONSTIPATION [None]
